FAERS Safety Report 4767641-3 (Version None)
Quarter: 2005Q3

REPORT INFORMATION
  Report Type: 
  Country: None (occurrence: None)
  Receive Date: 20050912
  Receipt Date: 20050831
  Transmission Date: 20060218
  Serious: Yes (Other)
  Sender: FDA-Public Use
  Company Number: 2005122974

PATIENT
  Age: 50 Year
  Sex: Female
  Weight: 100 kg

DRUGS (5)
  1. AROMASIN [Suspect]
     Indication: BREAST CANCER METASTATIC
     Dosage: 25 MG (25 MG,1 IN 1 D),ORAL
     Route: 048
     Dates: start: 20050601
  2. AVANDIA [Concomitant]
  3. GLUCOPHAGE [Concomitant]
  4. ZOLOFT [Concomitant]
  5. TRICOR [Concomitant]

REACTIONS (1)
  - PAPILLOEDEMA [None]
